FAERS Safety Report 8357330-0 (Version None)
Quarter: 2012Q2

REPORT INFORMATION
  Report Type: 
  Country: None (occurrence: None)
  Receive Date: 20120514
  Receipt Date: 20120509
  Transmission Date: 20120825
  Serious: Yes (Other)
  Sender: FDA-Public Use
  Company Number: US-PFIZER INC-2012091192

PATIENT
  Sex: Female
  Weight: 59 kg

DRUGS (22)
  1. CLONAZEPAM [Concomitant]
     Dosage: UNK
  2. SAPHRIS [Concomitant]
     Dosage: UNK
  3. METHYLPHENIDATE [Concomitant]
     Dosage: UNK
  4. FLEXERIL [Concomitant]
     Dosage: UNK
  5. NYSTATIN [Concomitant]
     Dosage: UNK
  6. LAMICTAL [Concomitant]
     Dosage: UNK
  7. CHANTIX [Suspect]
     Indication: SMOKING CESSATION THERAPY
     Dosage: UNK
     Route: 048
     Dates: start: 20080101
  8. CHANTIX [Suspect]
     Dosage: UNK
     Route: 048
     Dates: start: 20090101
  9. GENERLAC [Concomitant]
     Dosage: UNK
  10. VISTARIL [Concomitant]
     Dosage: UNK
  11. OMEPRAZOLE [Concomitant]
     Dosage: UNK
  12. FLONASE [Concomitant]
     Dosage: UNK
  13. MORPHINE [Concomitant]
     Dosage: UNK
  14. MUCINEX [Concomitant]
     Dosage: UNK
  15. TEMAZEPAM [Concomitant]
     Dosage: UNK
  16. PROCHLORPERAZINE [Concomitant]
     Dosage: UNK
  17. PROAIR HFA [Concomitant]
     Dosage: UNK
  18. CHANTIX [Suspect]
     Dosage: UNK
     Route: 048
     Dates: start: 20120101
  19. NORCO [Concomitant]
     Dosage: UNK
  20. LEVOTHYROXINE [Concomitant]
     Dosage: UNK
  21. SYMBICORT [Concomitant]
     Dosage: UNK
  22. PILOCARPINE [Concomitant]
     Dosage: UNK

REACTIONS (2)
  - THROAT CANCER [None]
  - PAIN [None]
